FAERS Safety Report 16644932 (Version 1)
Quarter: 2019Q3

REPORT INFORMATION
  Report Type: Spontaneous
  Country: CN (occurrence: CN)
  Receive Date: 20190729
  Receipt Date: 20190729
  Transmission Date: 20191004
  Serious: Yes (Life-Threatening)
  Sender: FDA-Public Use
  Company Number: CN-ELI_LILLY_AND_COMPANY-CN201907012624

PATIENT
  Sex: Male
  Weight: 66 kg

DRUGS (5)
  1. GEMZAR [Suspect]
     Active Substance: GEMCITABINE HYDROCHLORIDE
     Indication: ENDOCRINE NEOPLASM MALIGNANT
     Dosage: 0.7 G, SINGLE
     Route: 042
     Dates: start: 20190627, end: 20190627
  2. RECOMBINANT HUMAN THROMBOPOIETIN [Concomitant]
     Active Substance: THROMBOPOIETIN
     Indication: PRODUCT USED FOR UNKNOWN INDICATION
     Dosage: 15000 INTERNATIONAL UNIT, DAILY
     Route: 058
     Dates: start: 20190629, end: 20190708
  3. ABRAXANE [Suspect]
     Active Substance: PACLITAXEL
     Indication: PANCREATIC CARCINOMA
     Dosage: 200 MG, SINGLE
     Route: 042
     Dates: start: 20190627, end: 20190627
  4. GEMZAR [Suspect]
     Active Substance: GEMCITABINE HYDROCHLORIDE
     Indication: PANCREATIC CARCINOMA
     Dosage: 1 G, SINGLE
     Route: 042
     Dates: start: 20190627, end: 20190627
  5. ABRAXANE [Suspect]
     Active Substance: PACLITAXEL
     Indication: ENDOCRINE NEOPLASM MALIGNANT

REACTIONS (1)
  - Bone marrow failure [Recovered/Resolved]

NARRATIVE: CASE EVENT DATE: 20190702
